FAERS Safety Report 6803634-X (Version None)
Quarter: 2010Q2

REPORT INFORMATION
  Report Type: 
  Country: None (occurrence: None)
  Receive Date: 20100628
  Receipt Date: 20100625
  Transmission Date: 20101027
  Serious: No
  Sender: FDA-Public Use
  Company Number: US-ROXANE LABORATORIES, INC.-2010-RO-00661RO

PATIENT
  Sex: Female

DRUGS (4)
  1. PERINDOPRIL ERBUMINE [Suspect]
     Indication: HYPERTENSION
     Dosage: 4 MG
  2. PERINDOPRIL ERBUMINE [Suspect]
     Dosage: 8 MG
  3. MAXZIDE [Concomitant]
     Dosage: 25 MG
  4. TRI LO SPRINTEC [Concomitant]

REACTIONS (1)
  - DRUG INEFFECTIVE [None]
